FAERS Safety Report 13119351 (Version 3)
Quarter: 2017Q1

REPORT INFORMATION
  Report Type: Spontaneous
  Country: US (occurrence: US)
  Receive Date: 20170116
  Receipt Date: 20170321
  Transmission Date: 20170428
  Serious: Yes (Hospitalization)
  Sender: FDA-Public Use
  Company Number: US-ALLERGAN-1701518US

PATIENT
  Age: 86 Year
  Sex: Female

DRUGS (8)
  1. SYMBICORT [Concomitant]
     Active Substance: BUDESONIDE\FORMOTEROL FUMARATE DIHYDRATE
     Indication: CHRONIC OBSTRUCTIVE PULMONARY DISEASE
     Dosage: 2 PUFFS, BID
     Route: 055
  2. DIGITALIS [Concomitant]
     Active Substance: DIGITALIS
     Indication: HYPERTENSION
  3. COMBIVENT [Concomitant]
     Active Substance: ALBUTEROL SULFATE\IPRATROPIUM BROMIDE
     Indication: CHRONIC OBSTRUCTIVE PULMONARY DISEASE
     Dosage: UNK, PRN
     Route: 055
  4. LUMIGAN [Suspect]
     Active Substance: BIMATOPROST
     Indication: GLAUCOMA
     Dosage: 2 GTT, QHS
     Route: 047
     Dates: start: 201609
  5. ELIQUIS [Concomitant]
     Active Substance: APIXABAN
     Indication: PRODUCT USED FOR UNKNOWN INDICATION
     Dosage: UNK
     Route: 048
  6. LOSARTAN. [Concomitant]
     Active Substance: LOSARTAN
     Indication: PRODUCT USED FOR UNKNOWN INDICATION
     Dosage: UNK
     Route: 048
  7. COMBIVENT [Concomitant]
     Active Substance: ALBUTEROL SULFATE\IPRATROPIUM BROMIDE
     Indication: BRONCHOSPASM
  8. DIGITALIS [Concomitant]
     Active Substance: DIGITALIS
     Indication: ATRIAL FIBRILLATION
     Dosage: 0.125 MG, QD
     Route: 048

REACTIONS (10)
  - Weight decreased [Recovered/Resolved]
  - Dyspnoea [Not Recovered/Not Resolved]
  - Chronic obstructive pulmonary disease [Recovered/Resolved]
  - Decreased appetite [Recovered/Resolved]
  - Gastritis [Not Recovered/Not Resolved]
  - Skin discolouration [Recovered/Resolved]
  - Conjunctivitis [Recovered/Resolved]
  - Diarrhoea [Not Recovered/Not Resolved]
  - Blepharitis [Recovered/Resolved]
  - Feeling abnormal [Recovering/Resolving]
